FAERS Safety Report 6992924-6 (Version None)
Quarter: 2010Q3

REPORT INFORMATION
  Report Type: 
  Country: None (occurrence: None)
  Receive Date: 20100917
  Receipt Date: 20100907
  Transmission Date: 20110219
  Serious: Yes (Other)
  Sender: FDA-Public Use
  Company Number: US-PFIZER INC-2010113683

PATIENT
  Sex: Male
  Weight: 74.376 kg

DRUGS (2)
  1. DILANTIN [Suspect]
     Indication: EPILEPSY
     Dosage: 200 MG, 2X/DAY
     Route: 048
     Dates: start: 19950101
  2. PHENOBARBITAL [Concomitant]
     Dosage: UNK

REACTIONS (10)
  - ABDOMINAL DISCOMFORT [None]
  - ANTICONVULSANT DRUG LEVEL DECREASED [None]
  - ANTICONVULSANT DRUG LEVEL INCREASED [None]
  - DIARRHOEA [None]
  - GINGIVAL DISCOLOURATION [None]
  - INSOMNIA [None]
  - MOOD SWINGS [None]
  - MUSCLE TIGHTNESS [None]
  - NAUSEA [None]
  - TOOTH LOSS [None]
